FAERS Safety Report 19423783 (Version 2)
Quarter: 2021Q2

REPORT INFORMATION
  Report Type: Spontaneous
  Country: US (occurrence: US)
  Receive Date: 20210616
  Receipt Date: 20210629
  Transmission Date: 20210717
  Serious: Yes (Other)
  Sender: FDA-Public Use
  Company Number: US-JNJFOC-20210620870

PATIENT
  Age: 5 Decade
  Sex: Female

DRUGS (1)
  1. MENS ROGAINE EXTRA STRENGTH [Suspect]
     Active Substance: MINOXIDIL
     Indication: ALOPECIA
     Dosage: NOT PROVIDED IN RESPONSE AS DIRECTED
     Route: 061
     Dates: start: 202103

REACTIONS (4)
  - Drug hypersensitivity [Recovered/Resolved]
  - Product use issue [Recovered/Resolved]
  - Application site inflammation [Recovered/Resolved]
  - Intentional product misuse [Recovered/Resolved]

NARRATIVE: CASE EVENT DATE: 202103
